FAERS Safety Report 10074659 (Version 1)
Quarter: 2014Q2

REPORT INFORMATION
  Report Type: Spontaneous
  Country: DE (occurrence: DE)
  Receive Date: 20140414
  Receipt Date: 20140414
  Transmission Date: 20141212
  Serious: Yes (Other)
  Sender: FDA-Public Use
  Company Number: DE-AMGEN INC.-DEUSP2014026112

PATIENT
  Sex: Female

DRUGS (1)
  1. NEULASTA [Suspect]
     Indication: PRODUCT USED FOR UNKNOWN INDICATION
     Dosage: UNK
     Route: 065

REACTIONS (8)
  - Hypotension [Unknown]
  - Swollen tongue [Unknown]
  - Dyspnoea [Unknown]
  - White blood cell count abnormal [Unknown]
  - Pruritus [Unknown]
  - Fatigue [Unknown]
  - Erythema [Unknown]
  - Bone pain [Unknown]
